FAERS Safety Report 21258778 (Version 3)
Quarter: 2023Q1

REPORT INFORMATION
  Report Type: Report from Study
  Country: BR (occurrence: BR)
  Receive Date: 20220826
  Receipt Date: 20230210
  Transmission Date: 20230417
  Serious: Yes (Hospitalization, Other)
  Sender: FDA-Public Use
  Company Number: BR-JNJFOC-20220845087

PATIENT
  Age: 48 Year
  Sex: Female

DRUGS (2)
  1. SIMPONI [Suspect]
     Active Substance: GOLIMUMAB
     Indication: Rheumatoid arthritis
     Route: 058
     Dates: start: 20150624
  2. METHOTREXATE [Suspect]
     Active Substance: METHOTREXATE
     Indication: Rheumatoid arthritis
     Route: 065

REACTIONS (6)
  - Pneumonia bacterial [Recovered/Resolved]
  - Rheumatoid arthritis [Not Recovered/Not Resolved]
  - COVID-19 [Unknown]
  - Adverse event [Recovered/Resolved]
  - Sinusitis [Not Recovered/Not Resolved]
  - Pharyngitis [Not Recovered/Not Resolved]

NARRATIVE: CASE EVENT DATE: 20220615
